FAERS Safety Report 8011473-X (Version None)
Quarter: 2011Q4

REPORT INFORMATION
  Report Type: 
  Country: None (occurrence: None)
  Receive Date: 20111228
  Receipt Date: 20111215
  Transmission Date: 20120403
  Serious: Yes (Other)
  Sender: FDA-Public Use
  Company Number: US-PFIZER INC-2010154698

PATIENT
  Sex: Male
  Weight: 68.027 kg

DRUGS (2)
  1. VIAGRA [Suspect]
     Dosage: WEEKLY
     Dates: start: 20111101
  2. VIAGRA [Suspect]
     Indication: ERECTILE DYSFUNCTION
     Dosage: UNK

REACTIONS (9)
  - FEELING ABNORMAL [None]
  - ERECTION INCREASED [None]
  - INSOMNIA [None]
  - PENIS DISORDER [None]
  - PENILE ERYTHEMA [None]
  - EJACULATION DISORDER [None]
  - HEADACHE [None]
  - DRUG EFFECT DECREASED [None]
  - DYSURIA [None]
